FAERS Safety Report 9761561 (Version 1)
Quarter: 2013Q4

REPORT INFORMATION
  Report Type: Spontaneous
  Country: FR (occurrence: FR)
  Receive Date: 20131216
  Receipt Date: 20131216
  Transmission Date: 20140711
  Serious: Yes (Hospitalization)
  Sender: FDA-Public Use
  Company Number: FR-BRISTOL-MYERS SQUIBB COMPANY-19892025

PATIENT
  Age: 83 Year
  Sex: Male

DRUGS (13)
  1. SPRYCEL (CML) TABS 100 MG [Suspect]
     Indication: CHRONIC MYELOID LEUKAEMIA
     Dosage: AUG2010 (70MG/DAY)?MAR2011(1000MG/DAY)?LAST DOSE:MAY2012
     Route: 048
     Dates: start: 201008
  2. FUROSEMIDE [Concomitant]
     Dosage: 1DF:1 TABLET IN THE MORNING AND HALF A TABLET AT NOON?FUROSEMIDE 40MG
  3. RAMIPRIL [Concomitant]
     Dosage: RAMIPRIL 2.5MGTABS?1DF: 2TABS
  4. KARDEGIC [Concomitant]
     Dosage: 75 MG POWDER FOR ORAL SOLUTION IN SACHET ?ONE SACHET DAILY ORALLY
     Route: 048
  5. AMIODARONE [Concomitant]
     Dosage: 1DF:HALF A TABLET
     Route: 048
  6. SERESTA [Concomitant]
     Dosage: TABLET
     Route: 048
  7. MIANSERIN [Concomitant]
     Route: 048
  8. VENTOLIN [Concomitant]
     Dosage: INHALER ON DEMAND
  9. KALEORID [Concomitant]
     Dosage: KALEORID LP 600 MG,  EXTENDED-RELEASE TABLET ?1DF: 2TABS
     Route: 048
  10. CARDENSIEL [Concomitant]
     Dosage: FILM-COATED TABLET
     Route: 048
  11. OMEPRAZOLE [Concomitant]
  12. XATRAL LP [Concomitant]
     Dosage: EXTENDED-RELEASE TABLET
     Route: 048
  13. IXPRIM [Concomitant]
     Indication: PAIN
     Dosage: 1DF: 3TABS
     Route: 048

REACTIONS (2)
  - Pleural effusion [Not Recovered/Not Resolved]
  - Pleurisy [Not Recovered/Not Resolved]
